FAERS Safety Report 8789752 (Version 1)
Quarter: 2012Q4

REPORT INFORMATION
  Report Type: Spontaneous
  Country: GB (occurrence: None)
  Receive Date: 20120906
  Receipt Date: 20120906
  Transmission Date: 20130627
  Serious: Yes (Life-Threatening, Hospitalization)
  Sender: FDA-Public Use
  Company Number: GB-BANPHARM-20120094

PATIENT
  Age: 82 Year
  Sex: Female

DRUGS (4)
  1. IBUPROFEN [Suspect]
     Indication: TOOTHACHE
     Route: 048
     Dates: start: 20120207, end: 20120608
  2. ADCAL-D3 [Concomitant]
  3. CLOMETHIAZOLE [Concomitant]
  4. RISEDRONIC ACID [Concomitant]

REACTIONS (4)
  - Small intestinal haemorrhage [None]
  - Gastrointestinal haemorrhage [None]
  - Syncope [None]
  - Duodenal ulcer [None]
